FAERS Safety Report 25729304 (Version 1)
Quarter: 2025Q3

REPORT INFORMATION
  Report Type: Spontaneous
  Country: US (occurrence: US)
  Receive Date: 20250827
  Receipt Date: 20250827
  Transmission Date: 20251021
  Serious: No
  Sender: IPSEN BIOPHARMACEUTICALS, INC.
  Company Number: US-IPSEN Group, Research and Development-2025-20341

PATIENT
  Age: 86 Year
  Sex: Female

DRUGS (15)
  1. TAZVERIK [Suspect]
     Active Substance: TAZEMETOSTAT HYDROBROMIDE
     Indication: B-cell lymphoma stage III
     Route: 048
     Dates: start: 202301
  2. ACETAMINOPHEN [Concomitant]
     Active Substance: ACETAMINOPHEN
  3. AZOPT [Concomitant]
     Active Substance: BRINZOLAMIDE
  4. CALCIUM CARBONATE\VITAMIN D [Concomitant]
     Active Substance: CALCIUM CARBONATE\VITAMIN D
  5. COZAAR [Concomitant]
     Active Substance: LOSARTAN POTASSIUM
  6. ELIQUIS [Concomitant]
     Active Substance: APIXABAN
  7. FAMOTIDINE [Concomitant]
     Active Substance: FAMOTIDINE
  8. GLUCOSAMINE [Concomitant]
     Active Substance: GLUCOSAMINE
  9. LOPERAMIDE [Concomitant]
     Active Substance: LOPERAMIDE
  10. LOSARTAN AND HYDROCHLOROTHIAZIDE [Concomitant]
     Active Substance: HYDROCHLOROTHIAZIDE\LOSARTAN POTASSIUM
  11. METOPROLOL [Concomitant]
     Active Substance: METOPROLOL
  12. SUCCINATE D^ESTRIOL [Concomitant]
  13. VITAMINS [Concomitant]
     Active Substance: VITAMINS
  14. TIMOLOL MALEATE [Concomitant]
     Active Substance: TIMOLOL MALEATE
     Route: 047
  15. TRAVATAN [Concomitant]
     Active Substance: TRAVOPROST
     Route: 047

REACTIONS (1)
  - Oral pain [Not Recovered/Not Resolved]
